FAERS Safety Report 7402008-0 (Version None)
Quarter: 2011Q2

REPORT INFORMATION
  Report Type: 
  Country: None (occurrence: None)
  Receive Date: 20110408
  Receipt Date: 20110405
  Transmission Date: 20111010
  Serious: Yes (Other)
  Sender: FDA-Public Use
  Company Number: US-PFIZER INC-2011075459

PATIENT
  Sex: Male
  Weight: 59 kg

DRUGS (2)
  1. XALATAN [Suspect]
     Indication: GLAUCOMA
     Dosage: ONE DROP IN EACH EYE,UNK
     Route: 047
  2. COMBIGAN [Concomitant]
     Indication: GLAUCOMA
     Dosage: UNK

REACTIONS (1)
  - EYE INFLAMMATION [None]
